FAERS Safety Report 24882989 (Version 2)
Quarter: 2025Q1

REPORT INFORMATION
  Report Type: Spontaneous
  Country: BG (occurrence: BG)
  Receive Date: 20250124
  Receipt Date: 20250204
  Transmission Date: 20250409
  Serious: Yes (Other)
  Sender: SANOFI AVENTIS
  Company Number: BG-DialogSolutions-SAAVPROD-PI735493-C1

PATIENT
  Age: 64 Year
  Sex: Male

DRUGS (10)
  1. LEVOFLOXACIN [Suspect]
     Active Substance: LEVOFLOXACIN
     Indication: Tuberculosis
     Dosage: 0.500 MG, QD
     Route: 042
  2. RIFAMPIN [Suspect]
     Active Substance: RIFAMPIN
     Indication: Tuberculosis
  3. ISONIAZID [Suspect]
     Active Substance: ISONIAZID
     Indication: Tuberculosis
  4. ISONIAZID [Suspect]
     Active Substance: ISONIAZID
  5. ETHAMBUTOL [Suspect]
     Active Substance: ETHAMBUTOL HYDROCHLORIDE
     Indication: Tuberculosis
  6. PYRAZINAMIDE [Suspect]
     Active Substance: PYRAZINAMIDE
     Indication: Tuberculosis
     Dosage: 2000 MG, QD 2000 MG, QD (2 X 2 TABS 0.500/D)
  7. AMIKACIN [Suspect]
     Active Substance: AMIKACIN
     Indication: Tuberculosis
  8. EMTRICITABINE\TENOFOVIR DISOPROXIL FUMARATE [Concomitant]
     Active Substance: EMTRICITABINE\TENOFOVIR DISOPROXIL FUMARATE
     Indication: HIV infection
  9. DARUNAVIR [Concomitant]
     Active Substance: DARUNAVIR
     Indication: HIV infection
  10. COBICISTAT [Concomitant]
     Active Substance: COBICISTAT
     Indication: HIV infection

REACTIONS (2)
  - Immune reconstitution inflammatory syndrome [Unknown]
  - Pyrexia [Unknown]

NARRATIVE: CASE EVENT DATE: 20170415
